FAERS Safety Report 23997004 (Version 1)
Quarter: 2024Q2

REPORT INFORMATION
  Report Type: Spontaneous
  Country: CN (occurrence: CN)
  Receive Date: 20240621
  Receipt Date: 20240621
  Transmission Date: 20240716
  Serious: Yes (Other)
  Sender: FDA-Public Use
  Company Number: CN-PFIZER INC-PV202400078886

PATIENT
  Age: 58 Year
  Sex: Male

DRUGS (4)
  1. AVIBACTAM SODIUM\CEFTAZIDIME [Suspect]
     Active Substance: AVIBACTAM SODIUM\CEFTAZIDIME
     Indication: Symptomatic treatment
     Dosage: TIME INTERVAL: 0.33333333 DAYS: 2.5 G, 3X/DAY
     Route: 041
     Dates: start: 20240409, end: 20240410
  2. CEFTAZIDIME [Suspect]
     Active Substance: CEFTAZIDIME
     Indication: Symptomatic treatment
     Dosage: 2 G, 2X/DAY
     Route: 041
     Dates: start: 20240403, end: 20240407
  3. CEFTAZIDIME [Suspect]
     Active Substance: CEFTAZIDIME
     Indication: Symptomatic treatment
     Dosage: 2 G, 2X/DAY
     Route: 041
     Dates: start: 20240316, end: 20240320
  4. MEROPENEM [Suspect]
     Active Substance: MEROPENEM
     Indication: Symptomatic treatment
     Dosage: TIME INTERVAL: 0.33333333 DAYS: 2 G, 3X/DAY
     Route: 041
     Dates: start: 20240325, end: 20240329

REACTIONS (1)
  - Full blood count decreased [Not Recovered/Not Resolved]

NARRATIVE: CASE EVENT DATE: 20240410
